FAERS Safety Report 12070578 (Version 2)
Quarter: 2019Q2

REPORT INFORMATION
  Report Type: Spontaneous
  Country: US (occurrence: US)
  Receive Date: 20160211
  Receipt Date: 20190628
  Transmission Date: 20190711
  Serious: Yes (Death, Hospitalization, Other)
  Sender: FDA-Public Use
  Company Number: US-009507513-1602USA005964

PATIENT
  Sex: Female
  Weight: 72.56 kg

DRUGS (2)
  1. JANUMET [Suspect]
     Active Substance: METFORMIN HYDROCHLORIDE\SITAGLIPTIN PHOSPHATE
     Indication: TYPE 2 DIABETES MELLITUS
     Dosage: 50-500 MG TWICE DAILY
     Route: 048
     Dates: start: 20090324, end: 20130227
  2. JANUMET [Suspect]
     Active Substance: METFORMIN HYDROCHLORIDE\SITAGLIPTIN PHOSPHATE
     Dosage: 50-1000 MG TWICE DAILY
     Route: 048
     Dates: start: 20130228, end: 201312

REACTIONS (6)
  - Hyperlipidaemia [Unknown]
  - Hypertension [Unknown]
  - Jaundice [Unknown]
  - Deep vein thrombosis [Recovering/Resolving]
  - Pancreatic carcinoma metastatic [Fatal]
  - Gastrooesophageal reflux disease [Unknown]

NARRATIVE: CASE EVENT DATE: 20131211
